FAERS Safety Report 7484103-3 (Version None)
Quarter: 2011Q2

REPORT INFORMATION
  Report Type: 
  Country: None (occurrence: None)
  Receive Date: 20110517
  Receipt Date: 20090528
  Transmission Date: 20111010
  Serious: Yes (Death, Hospitalization, Other)
  Sender: FDA-Public Use
  Company Number: US-BAYER-200921730NA

PATIENT
  Age: 73 Year
  Sex: Male
  Weight: 85.17 kg

DRUGS (21)
  1. PLASMA [Concomitant]
     Dosage: 4 U, UNK
     Route: 042
     Dates: start: 20040423
  2. RED BLOOD CELLS [Concomitant]
     Dosage: 2 U, UNK
     Route: 042
     Dates: start: 20040423
  3. ARANESP [Concomitant]
     Indication: ANAEMIA
     Dosage: 60 MCG ONCE TO TWICE DAILY
     Route: 058
     Dates: start: 20030201
  4. ACETYLSALICYLIC ACID SRT [Concomitant]
     Dosage: 325 MG, QD
     Route: 048
  5. CATAPRES [Concomitant]
     Indication: BLOOD PRESSURE MANAGEMENT
     Dosage: 1 PATCH WEEKLY
     Route: 062
     Dates: start: 20040226
  6. NAPROXEN [Concomitant]
     Dosage: AS NEEDED
  7. NEURONTIN [Concomitant]
     Indication: NEUROPATHY PERIPHERAL
     Dosage: 100 MG, BID
     Route: 048
     Dates: start: 20030101
  8. PLETAL [Concomitant]
     Dosage: 100 MG
     Route: 048
  9. TRASYLOL [Suspect]
     Dosage: 150 ML LOADING DOSE FOLLOWED BY 50 ML/HOUR INFUSION
     Route: 042
     Dates: start: 20040423, end: 20040423
  10. ACETAMINOPHEN [Concomitant]
     Indication: PAIN
     Dosage: AS NEEDED
     Route: 048
  11. ACETAMINOPHEN W/ CODEINE [Concomitant]
     Dosage: 500/20 THREE TIMES DAILY
     Route: 048
     Dates: start: 20030101
  12. COREG [Concomitant]
     Dosage: 6.25 MG, BID
     Route: 048
     Dates: start: 20040422
  13. ZITHROMAX [Concomitant]
     Indication: INFECTION
     Dosage: UNK
     Route: 048
     Dates: start: 20040101
  14. SODIUM BICARBONATE [Concomitant]
     Dosage: 100 MILLEQUIVILANT
     Route: 042
     Dates: start: 20040423
  15. AMARYL [Concomitant]
     Indication: DIABETES MELLITUS
     Dosage: 4 MG, QD
     Route: 048
  16. LASIX [Concomitant]
     Dosage: 40 MG, QD
     Route: 048
     Dates: start: 20020101
  17. LOPRESSOR [Concomitant]
     Indication: BLOOD PRESSURE MANAGEMENT
     Dosage: DAILY
     Route: 048
  18. VERELAN [Concomitant]
     Dosage: 200 MG, TID
     Route: 048
     Dates: start: 20030101
  19. CALCIUM CHLORIDE [Concomitant]
     Indication: VASCULAR GRAFT
     Dosage: 2 G, UNK
     Route: 042
     Dates: start: 20040423
  20. HEPARIN [Concomitant]
     Dosage: 10000 UNITS
     Route: 042
     Dates: start: 20040423
  21. TRASYLOL [Suspect]
     Indication: CORONARY ARTERY BYPASS
     Dosage: 1 ML INITIAL (TEST) DOSE
     Route: 042
     Dates: start: 20040423, end: 20040423

REACTIONS (6)
  - RENAL FAILURE ACUTE [None]
  - RENAL INJURY [None]
  - UNEVALUABLE EVENT [None]
  - RENAL FAILURE [None]
  - PAIN [None]
  - INJURY [None]
